FAERS Safety Report 4626145-9 (Version None)
Quarter: 2005Q2

REPORT INFORMATION
  Report Type: 
  Country: None (occurrence: None)
  Receive Date: 20050404
  Receipt Date: 20050322
  Transmission Date: 20051028
  Serious: Yes (Other)
  Sender: FDA-Public Use
  Company Number: DE-BRISTOL-MYERS SQUIBB COMPANY-12907457

PATIENT
  Age: 22 Year
  Sex: Male

DRUGS (3)
  1. BLEOMYCIN [Suspect]
     Indication: TESTIS CANCER
     Route: 043
     Dates: start: 20020801
  2. ETOPOSIDE [Concomitant]
     Indication: TESTIS CANCER
  3. CISPLATIN [Concomitant]
     Indication: TESTIS CANCER

REACTIONS (4)
  - EXTREMITY CONTRACTURE [None]
  - EXTREMITY NECROSIS [None]
  - PULMONARY TOXICITY [None]
  - RAYNAUD'S PHENOMENON [None]
